FAERS Safety Report 17929425 (Version 1)
Quarter: 2020Q2

REPORT INFORMATION
  Report Type: Spontaneous
  Country: US (occurrence: US)
  Receive Date: 20200623
  Receipt Date: 20200623
  Transmission Date: 20200714
  Serious: No
  Sender: FDA-Public Use
  Company Number: None

PATIENT
  Age: 46 Year
  Sex: Female
  Weight: 85.95 kg

DRUGS (16)
  1. HYDROCODONE [Concomitant]
     Active Substance: HYDROCODONE
  2. RINVOQ [Suspect]
     Active Substance: UPADACITINIB
     Indication: RHEUMATOID ARTHRITIS
     Dosage: ?          QUANTITY:1 TABLET(S);?
     Route: 048
     Dates: start: 20191231, end: 20200603
  3. ADVAIR HFA [Concomitant]
     Active Substance: FLUTICASONE PROPIONATE\SALMETEROL XINAFOATE
  4. PLAQUENIL [Concomitant]
     Active Substance: HYDROXYCHLOROQUINE SULFATE
  5. ALBUTEROL SULFATE. [Concomitant]
     Active Substance: ALBUTEROL SULFATE
  6. VITAMIN C [Concomitant]
     Active Substance: ASCORBIC ACID
  7. ACYCLOVIR. [Concomitant]
     Active Substance: ACYCLOVIR
  8. IBUPROFEN. [Concomitant]
     Active Substance: IBUPROFEN
  9. PREGABALIN. [Concomitant]
     Active Substance: PREGABALIN
  10. MULTI VITAMIN [Concomitant]
     Active Substance: VITAMINS
  11. VITAMIN D3 [Concomitant]
     Active Substance: CHOLECALCIFEROL
  12. METHOCARBAMOL. [Concomitant]
     Active Substance: METHOCARBAMOL
  13. DULOXATINE [Concomitant]
     Active Substance: DULOXETINE
  14. FISH OIL [Concomitant]
     Active Substance: FISH OIL
  15. FLUTICASONE. [Concomitant]
     Active Substance: FLUTICASONE
  16. DEPRO-PROVERA [Concomitant]

REACTIONS (1)
  - Herpes zoster [None]

NARRATIVE: CASE EVENT DATE: 20200602
